FAERS Safety Report 6129532-5 (Version None)
Quarter: 2009Q1

REPORT INFORMATION
  Report Type: 
  Country: None (occurrence: None)
  Receive Date: 20090324
  Receipt Date: 20090317
  Transmission Date: 20090719
  Serious: Yes (Hospitalization)
  Sender: FDA-Public Use
  Company Number: FR-WYE-G03333309

PATIENT
  Sex: Female

DRUGS (2)
  1. EFFEXOR [Suspect]
     Indication: DEPRESSION
     Dosage: 225 MG TOTAL DAILY
     Route: 048
  2. VOLTAREN-XR [Suspect]
     Indication: OSTEOARTHRITIS
     Dosage: 150 MG TOTAL DAILY
     Route: 048
     Dates: start: 20090101, end: 20090301

REACTIONS (2)
  - COLITIS ISCHAEMIC [None]
  - COLITIS ULCERATIVE [None]
